FAERS Safety Report 17109697 (Version 1)
Quarter: 2019Q4

REPORT INFORMATION
  Report Type: Report from Study
  Country: ES (occurrence: ES)
  Receive Date: 20191204
  Receipt Date: 20191204
  Transmission Date: 20200122
  Serious: Yes (Hospitalization)
  Sender: FDA-Public Use
  Company Number: ES-TEVA-2019-ES-1146859

PATIENT
  Age: 87 Year
  Sex: Female

DRUGS (2)
  1. ALOPURINOL (318A) [Suspect]
     Active Substance: ALLOPURINOL
     Route: 065
     Dates: start: 2017
  2. CEFUROXIMA (828A) [Suspect]
     Active Substance: CEFUROXIME
     Route: 065
     Dates: start: 201704, end: 201705

REACTIONS (1)
  - Cholestasis [Unknown]

NARRATIVE: CASE EVENT DATE: 201704
